FAERS Safety Report 4320482-3 (Version None)
Quarter: 2004Q1

REPORT INFORMATION
  Report Type: 
  Country: None (occurrence: None)
  Receive Date: 20040317
  Receipt Date: 20040304
  Transmission Date: 20041129
  Serious: Yes (Other)
  Sender: FDA-Public Use
  Company Number: 2004013382

PATIENT
  Age: 44 Year
  Sex: Female

DRUGS (1)
  1. ZOLOFT [Suspect]
     Indication: DEPRESSION
     Dosage: 25 MG (DAILY), UNKNOWN
     Dates: start: 20030101, end: 20030309

REACTIONS (8)
  - ALTERED VISUAL DEPTH PERCEPTION [None]
  - EYE SWELLING [None]
  - MACULAR HOLE [None]
  - MYOPIA [None]
  - PRESBYOPIA [None]
  - VISION BLURRED [None]
  - VISUAL DISTURBANCE [None]
  - VITREOUS FLOATERS [None]
